FAERS Safety Report 8614108-8 (Version None)
Quarter: 2012Q3

REPORT INFORMATION
  Report Type: 
  Country: None (occurrence: None)
  Receive Date: 20120823
  Receipt Date: 20120815
  Transmission Date: 20120928
  Serious: Yes (Other)
  Sender: FDA-Public Use
  Company Number: US-BAYER-2012-032665

PATIENT
  Age: 35 Year
  Sex: Female

DRUGS (5)
  1. H-C TUSSIVE [Concomitant]
     Dosage: 1 TES (INTERPRETED AS TEASPOON) Q 6 H (INTERPRETED AS EVERY 6 HOURS)
     Route: 048
     Dates: start: 20061227
  2. TUSSIONEX [Concomitant]
     Dosage: TK ONE TEA QHS PRN (INTERPRETED AS TAKE ONE TEASPOON AT BEDTIME AS NEEDED)
     Route: 048
     Dates: start: 20061211
  3. LEVAQUIN [Concomitant]
     Dosage: 500 MG, DAILY
     Route: 048
     Dates: start: 20061227
  4. HYDROCODONE BITARTRATE AND ACETAMINOPHEN [Concomitant]
     Dosage: 5MG/500MG 1 OR 2 TS (INTERPRETED AS TABLETS) Q 4 TO 6 H PRN (INTERPRETED AS EVERY 4 TO 6 HOURS AS NE
     Route: 048
     Dates: start: 20061205, end: 20070319
  5. YAZ [Suspect]

REACTIONS (6)
  - INJURY [None]
  - PAIN [None]
  - DEEP VEIN THROMBOSIS [None]
  - GENERAL PHYSICAL HEALTH DETERIORATION [None]
  - ANXIETY [None]
  - EMOTIONAL DISTRESS [None]
